FAERS Safety Report 10089765 (Version 1)
Quarter: 2014Q2

REPORT INFORMATION
  Report Type: Spontaneous
  Country: US (occurrence: US)
  Receive Date: 20140421
  Receipt Date: 20140421
  Transmission Date: 20141212
  Serious: No
  Sender: FDA-Public Use
  Company Number: US-PFIZER INC-2014110437

PATIENT
  Age: 74 Year
  Sex: Female
  Weight: 82.54 kg

DRUGS (6)
  1. EFFEXOR XR [Suspect]
     Indication: DEPRESSION
     Dosage: 75 MG, UNK
     Dates: start: 2013
  2. EFFEXOR XR [Suspect]
     Dosage: 150 MG, DAILY
  3. EFFEXOR XR [Suspect]
     Dosage: UNK
  4. METFORMIN [Concomitant]
     Indication: DIABETES MELLITUS
     Dosage: 500 MG, 2X/DAY
  5. LANTUS [Concomitant]
     Indication: DIABETES MELLITUS
     Dosage: 55 IU, DAILY
  6. JANUVIA [Concomitant]
     Indication: DIABETES MELLITUS
     Dosage: 10 MG, DAILY

REACTIONS (1)
  - Drug ineffective [Recovered/Resolved]
